FAERS Safety Report 8624130-3 (Version None)
Quarter: 2012Q3

REPORT INFORMATION
  Report Type: 
  Country: None (occurrence: None)
  Receive Date: 20120827
  Receipt Date: 20120820
  Transmission Date: 20120928
  Serious: Yes (Hospitalization)
  Sender: FDA-Public Use
  Company Number: US-JNJFOC-20120810809

PATIENT
  Sex: Male
  Weight: 26.7 kg

DRUGS (14)
  1. MULTIVITAMIN [Concomitant]
  2. FERROUS SULFATE TAB [Concomitant]
  3. REMICADE [Suspect]
     Indication: CROHN'S DISEASE
     Route: 042
  4. REMICADE [Suspect]
     Route: 042
     Dates: start: 20111206
  5. METHOTREXATE [Suspect]
     Indication: CROHN'S DISEASE
     Dates: start: 20111204, end: 20120120
  6. CHOLECALCIFEROL [Concomitant]
  7. CEFDINIR [Concomitant]
  8. FOLIC ACID [Concomitant]
  9. OXYCODONE/ACETAMINOPHEN [Concomitant]
  10. HYDROCORTISONE [Concomitant]
  11. METRONIDAZOLE [Concomitant]
  12. REMICADE [Suspect]
     Route: 042
  13. CALCIUM CARBONATE [Concomitant]
  14. ACETAMINOPHEN [Concomitant]

REACTIONS (1)
  - CROHN'S DISEASE [None]
